FAERS Safety Report 7963961-X (Version None)
Quarter: 2011Q4

REPORT INFORMATION
  Report Type: 
  Country: None (occurrence: None)
  Receive Date: 20111208
  Receipt Date: 20111129
  Transmission Date: 20120403
  Serious: No
  Sender: FDA-Public Use
  Company Number: US-BAYER-2011-115959

PATIENT
  Sex: Female

DRUGS (2)
  1. ALEVE (CAPLET) [Suspect]
     Indication: MUSCULOSKELETAL PAIN
     Dosage: UNK, QD
     Route: 048
  2. ALEVE (CAPLET) [Suspect]
     Indication: ARTHRALGIA

REACTIONS (3)
  - ARTHRALGIA [None]
  - NO ADVERSE EVENT [None]
  - MUSCULOSKELETAL PAIN [None]
